FAERS Safety Report 8848764 (Version 1)
Quarter: 2012Q4

REPORT INFORMATION
  Report Type: Spontaneous
  Country: US (occurrence: None)
  Receive Date: 20121017
  Receipt Date: 20121017
  Transmission Date: 20130627
  Serious: No
  Sender: FDA-Public Use
  Company Number: None

PATIENT
  Sex: Female

DRUGS (2)
  1. REQUIP [Suspect]
     Indication: RESTLESS LEG SYNDROME
  2. MIRAPEX [Suspect]
     Indication: RESTLESS LEG SYNDROME

REACTIONS (2)
  - Drug effect decreased [None]
  - Movement disorder [None]
